FAERS Safety Report 10380374 (Version 1)
Quarter: 2014Q1

REPORT INFORMATION
  Report Type: Spontaneous
  Country: US (occurrence: None)
  Receive Date: 20140306
  Receipt Date: 20140306
  Transmission Date: 20141002
  Serious: Yes (Other)
  Sender: FDA-Public Use
  Company Number: 163-21880-13113805

PATIENT
  Age: 74 Year
  Sex: Female
  Weight: 44.45 kg

DRUGS (10)
  1. REVLIMID (LENALIDOMIDE) (5 MILLIGRAM, CAPSULES) [Suspect]
     Indication: PLASMA CELL MYELOMA
     Dosage: 5 MG, 21 IN 21 D, PO?
     Route: 048
     Dates: start: 201307, end: 201310
  2. OXYCODONE / APAP [Concomitant]
  3. PROCHLORPERAZINE [Concomitant]
  4. LANSOPRAZOLE [Concomitant]
  5. IRBESARTAN [Concomitant]
  6. DRONABINOL [Concomitant]
  7. MULTI-VIT [Concomitant]
  8. ZOMETA (ZOLEDRONIC ACID) [Concomitant]
  9. ASA (ACETYLSALICYLIC ACID) [Concomitant]
  10. VITAMIN D3 (COLECALCIFEROL) [Concomitant]

REACTIONS (4)
  - Plasma cell myeloma [None]
  - Compression fracture [None]
  - Back pain [None]
  - Blood immunoglobulin M increased [None]
